FAERS Safety Report 4498465-2 (Version None)
Quarter: 2004Q4

REPORT INFORMATION
  Report Type: 
  Country: None (occurrence: None)
  Receive Date: 20041105
  Receipt Date: 20041026
  Transmission Date: 20050328
  Serious: Yes (Hospitalization)
  Sender: FDA-Public Use
  Company Number: MK200411-0030-1

PATIENT
  Age: 75 Year
  Sex: Female

DRUGS (2)
  1. ANAFRANIL [Suspect]
  2. LEVOTHYROXINE SODIUM [Concomitant]

REACTIONS (2)
  - DRUG INEFFECTIVE [None]
  - DYSKINESIA [None]
